FAERS Safety Report 6895352-7 (Version None)
Quarter: 2010Q3

REPORT INFORMATION
  Report Type: 
  Country: None (occurrence: None)
  Receive Date: 20100802
  Receipt Date: 20100721
  Transmission Date: 20110219
  Serious: Yes (Other)
  Sender: FDA-Public Use
  Company Number: JP-AMGEN-QUU428115

PATIENT
  Age: 70 Year
  Sex: Female

DRUGS (4)
  1. ENBREL [Suspect]
     Indication: RHEUMATOID ARTHRITIS
     Dosage: UNSPECIFIED
     Route: 058
     Dates: start: 20100628, end: 20100705
  2. LOXONIN [Concomitant]
     Indication: SPINAL COLUMN STENOSIS
     Dosage: 60 MG
     Route: 048
  3. OPALMON [Concomitant]
     Indication: SPINAL COLUMN STENOSIS
     Dosage: 15 UG
     Route: 045
  4. AZULFIDINE - SLOW RELEASE [Concomitant]
     Indication: RHEUMATOID ARTHRITIS
     Route: 048

REACTIONS (2)
  - PYREXIA [None]
  - VOMITING [None]
